FAERS Safety Report 9485408 (Version 1)
Quarter: 2013Q3

REPORT INFORMATION
  Report Type: Spontaneous
  Country: US (occurrence: US)
  Receive Date: 20130829
  Receipt Date: 20130829
  Transmission Date: 20140515
  Serious: Yes (Disabling)
  Sender: FDA-Public Use
  Company Number: US-009507513-1308USA010459

PATIENT
  Sex: Male

DRUGS (2)
  1. REMERON SOLTAB [Suspect]
     Dosage: UNK, ONCE
     Route: 048
     Dates: start: 2013, end: 2013
  2. MIRALAX [Concomitant]
     Indication: FREQUENT BOWEL MOVEMENTS
     Dosage: UNK UNK, BID
     Dates: start: 2013

REACTIONS (3)
  - Motor dysfunction [Unknown]
  - Dizziness [Unknown]
  - Nausea [Unknown]
